FAERS Safety Report 15803283 (Version 1)
Quarter: 2019Q1

REPORT INFORMATION
  Report Type: Spontaneous
  Country: US (occurrence: US)
  Receive Date: 20190109
  Receipt Date: 20190109
  Transmission Date: 20190417
  Serious: Yes (Other)
  Sender: FDA-Public Use
  Company Number: PHEH2019US000647

PATIENT
  Age: 74 Year
  Sex: Female

DRUGS (1)
  1. COSENTYX [Suspect]
     Active Substance: SECUKINUMAB
     Indication: PRODUCT USED FOR UNKNOWN INDICATION
     Dosage: UNK
     Route: 065
     Dates: start: 201801, end: 201811

REACTIONS (10)
  - Dyspnoea [Unknown]
  - Suicidal ideation [Unknown]
  - Gastrointestinal pain [Unknown]
  - Paraesthesia [Unknown]
  - Depression [Unknown]
  - Eye irritation [Unknown]
  - Vision blurred [Unknown]
  - Fatigue [Unknown]
  - Polyp [Unknown]
  - Rectal haemorrhage [Unknown]

NARRATIVE: CASE EVENT DATE: 201808
